FAERS Safety Report 8580587-8 (Version None)
Quarter: 2012Q3

REPORT INFORMATION
  Report Type: 
  Country: None (occurrence: None)
  Receive Date: 20120809
  Receipt Date: 20120730
  Transmission Date: 20120928
  Serious: Yes (Other)
  Sender: FDA-Public Use
  Company Number: US-ASTRAZENECA-2012SE16854

PATIENT
  Age: 59 Year
  Sex: Female
  Weight: 83 kg

DRUGS (84)
  1. NEXIUM [Suspect]
     Route: 048
     Dates: start: 20090519
  2. VITAMIN E [Concomitant]
     Dosage: 1000 UNIT 3 PILLS DAILY
  3. ATENOLOL [Concomitant]
     Dates: start: 20090407
  4. ATENOLOL [Concomitant]
     Dates: start: 20100902
  5. GLIMEPIRIDE [Concomitant]
     Indication: DIABETES MELLITUS
  6. MECLIZINE/ANTIVERT [Concomitant]
     Dates: start: 20111010
  7. IBUPROFEN (ADVIL) [Concomitant]
     Dates: start: 20100902
  8. BENADRYL [Concomitant]
     Dates: start: 20111010
  9. ALENDRONATE SODIUM [Concomitant]
     Dosage: 70 MG 1 TABLET ONCE Q WEEK
     Route: 048
     Dates: start: 20111010
  10. POTASSIUM CHLORIDE [Concomitant]
     Route: 048
     Dates: start: 20111010
  11. NEXIUM [Suspect]
     Route: 048
     Dates: start: 20111010
  12. ALBUTEROL SULFATE [Concomitant]
     Dosage: HFA 2 PUFFS QID
     Dates: start: 20100215
  13. CLONAZEPAM [Concomitant]
  14. HYDROCODONE BITARTRATE AND ACETAMINOPHEN [Concomitant]
     Dosage: 5/500
     Dates: start: 20081128
  15. LISINOPRIL [Concomitant]
     Dates: start: 20081205
  16. NEXIUM [Suspect]
     Route: 048
     Dates: start: 20090519
  17. IBUPROFEN (ADVIL) [Concomitant]
     Dates: start: 20080826
  18. CITALOPRAM HYDROBROMIDE [Concomitant]
     Dates: start: 20100215
  19. BENADRYL [Concomitant]
     Dates: start: 20100215
  20. ZITHROMAX [Concomitant]
     Dosage: 250 MG 2 TABLET ON THE FIRST DAY THEN ONE TABLET FOR 4 DAYS ORALLY ONCE A DAY
     Dates: start: 20111010
  21. CALCITRIOL [Concomitant]
     Route: 048
     Dates: start: 20111010
  22. NEXIUM [Suspect]
     Indication: CHEST PAIN
     Route: 048
     Dates: start: 20090101, end: 20110101
  23. NEXIUM [Suspect]
     Route: 048
     Dates: start: 20111010
  24. POTASSIUM [Concomitant]
     Route: 048
  25. ATENOLOL [Concomitant]
     Indication: HYPERTENSION
  26. ATENOLOL [Concomitant]
     Dates: start: 20100902
  27. GLIMEPIRIDE [Concomitant]
     Dosage: 1MG 1TABLET DAILY WITH BREAKFAST OR THE FIRST MAIN MEAL
     Route: 048
     Dates: start: 20111024
  28. GLIMEPIRIDE [Concomitant]
     Dosage: 1MG 1TABLET WITH BREAKFAST OR THE FIRST MAIN MEAL OF THE DAY ORALLY ONCE A DAY
     Route: 048
     Dates: start: 20111010
  29. ESTRADERM [Concomitant]
     Dates: start: 20081208
  30. FLUCONAZOLE [Concomitant]
     Dates: start: 20090212
  31. MAXAZIDE [Concomitant]
     Indication: HYPERTENSIVE HEART DISEASE
     Dosage: 37.5/25 QD
     Dates: start: 20100215
  32. CIPRO HC [Concomitant]
  33. CALCIUM CALTRATE [Concomitant]
     Dosage: 600 DAILY
     Dates: start: 20100215
  34. PRAVASTATIN SODIUM TABLET [Concomitant]
     Indication: HYPERLIPIDAEMIA
  35. NEXIUM [Suspect]
     Indication: GASTROOESOPHAGEAL REFLUX DISEASE
     Route: 048
     Dates: start: 20090101, end: 20110101
  36. NEXIUM [Suspect]
     Route: 048
     Dates: start: 20110101
  37. ATENOLOL [Concomitant]
     Indication: HYPERTENSIVE HEART DISEASE
  38. SIMVASTATION [Concomitant]
     Indication: HYPERLIPIDAEMIA
     Dates: start: 20100101
  39. ASPIRIN [Concomitant]
     Indication: CHEST PAIN
     Dates: start: 20100215
  40. ZYRTEC-D 12 HOUR [Concomitant]
     Route: 048
     Dates: start: 20111010
  41. ESTRADERM [Concomitant]
     Dosage: 0.05MG ONE 24-HOUR PATCH TO SKIN A DAY
     Dates: start: 20100902
  42. CITALOPRAM HYDROBROMIDE [Concomitant]
     Dates: start: 20081128
  43. LISINOPRIL [Concomitant]
     Dates: start: 20100215
  44. LEVAQUIN [Concomitant]
     Dates: start: 20080918
  45. METRONIDAZOLE [Concomitant]
     Dates: start: 20090218
  46. NASONEX [Concomitant]
  47. NEXIUM [Suspect]
     Route: 048
     Dates: start: 20100902
  48. ROLAIDS [Concomitant]
  49. ATENOLOL [Concomitant]
     Route: 048
     Dates: start: 20111010
  50. SIMVASTATION [Concomitant]
     Dosage: 40 MG 1 TABLET EVERY EVENING ORALLY ONCE A DAY
     Route: 048
     Dates: start: 20101010
  51. TYLENOL [Concomitant]
     Dosage: 2 30 500 MG AS DIRECTED
  52. TYLENOL [Concomitant]
     Dosage: PRN
     Dates: start: 20100215
  53. ALBUTEROL SULFATE [Concomitant]
     Dosage: BY NEBULIZER 3 TO 4 TIMES A DAY
     Dates: start: 20100215
  54. ZYRTEC-D 12 HOUR [Concomitant]
     Indication: NASAL CONGESTION
     Dosage: 5-120 MG ONCE A DAY
     Dates: start: 20100902
  55. ZYRTEC-D 12 HOUR [Concomitant]
     Route: 048
     Dates: start: 20111010
  56. ZYRTEC-D 12 HOUR [Concomitant]
     Route: 048
     Dates: start: 20111010
  57. EXFORGE HCT [Concomitant]
     Indication: HYPERTENSIVE HEART DISEASE
     Dosage: 10-160-12.5MG ONCE A DAY
     Dates: start: 20100902
  58. EXFORGE HCT [Concomitant]
     Indication: HYPERTENSION
     Dosage: 10-160-12.5MG ONCE A DAY
     Dates: start: 20100902
  59. CARISOPRODOL [Concomitant]
     Dates: start: 20090203
  60. MAXAZIDE [Concomitant]
     Indication: HYPERTENSION
     Dosage: 37.5/25 QD
     Dates: start: 20100215
  61. SUDAFED 12 HOUR [Concomitant]
     Route: 048
     Dates: start: 20111010
  62. NEXIUM [Suspect]
     Route: 048
     Dates: start: 20100902
  63. NEXIUM [Suspect]
     Route: 048
     Dates: start: 20111024
  64. SIMVASTATION [Concomitant]
     Dates: start: 20100215
  65. ASPIRIN [Concomitant]
     Route: 048
     Dates: start: 20101010
  66. TYLENOL [Concomitant]
     Dosage: 325 MG 1 TABLET AS NEEDED ORALLY EVERY 6 HRS
     Route: 048
     Dates: start: 20111010
  67. ALBUTEROL SULFATE [Concomitant]
     Indication: ASTHMA
     Dosage: 0.083%ML AS NEEDED
  68. ALBUTEROL SULFATE [Concomitant]
     Dosage: 108(90 BASE) MCG/ACT 2 PUFF INHALATION EVERY 6 HRS PRN
     Dates: start: 20111024
  69. IBUPROFEN (ADVIL) [Concomitant]
     Dosage: AS NEEDED
     Dates: start: 20100215
  70. IBUPROFEN (ADVIL) [Concomitant]
     Route: 048
     Dates: start: 20111010
  71. BENADRYL [Concomitant]
     Dates: start: 20100902
  72. ADVAIR DISKUS 100/50 [Concomitant]
     Indication: ASTHMA
     Dosage: 250-50 MCG/DOSE 1 EVERY 12 HOURS
     Dates: start: 20100902
  73. EXFORGE [Concomitant]
     Indication: HYPERTENSION
     Dates: start: 20100902
  74. ASCORBIC ACID [Concomitant]
     Dosage: ONCE A DAY
     Dates: start: 20100215
  75. TRIAMTERENE AND HYDROCHLOROTHIAZIDE [Concomitant]
     Dosage: 37.5 - 25 MG 1 TABLET IN THE MORNING ORALLY ONCE A DAY
     Route: 048
     Dates: start: 20111010
  76. NEXIUM [Suspect]
     Route: 048
     Dates: start: 20110101
  77. NEXIUM [Suspect]
     Route: 048
     Dates: start: 20111024
  78. ATENOLOL [Concomitant]
     Dates: start: 20090407
  79. ATENOLOL [Concomitant]
     Route: 048
     Dates: start: 20111010
  80. ZYRTEC-D 12 HOUR [Concomitant]
     Indication: ASTHMA
     Dosage: 5-120 MG ONCE A DAY
     Dates: start: 20100902
  81. ZYRTEC-D 12 HOUR [Concomitant]
     Indication: MULTIPLE ALLERGIES
     Dosage: 5-120 MG ONCE A DAY
     Dates: start: 20100902
  82. ZOFRAN ODT [Concomitant]
  83. NASONEX [Concomitant]
     Dosage: AS NEEDED
     Dates: start: 20100215
  84. ALENDRONATE SODIUM [Concomitant]
     Dosage: 70 MG 1 TABLET ONCE A WEEK
     Dates: start: 20100902

REACTIONS (12)
  - FOOT FRACTURE [None]
  - MIGRAINE [None]
  - TRICUSPID VALVE DISEASE [None]
  - TRANSIENT ISCHAEMIC ATTACK [None]
  - VERTIGO [None]
  - DEPRESSION [None]
  - OSTEOARTHRITIS [None]
  - OSTEOPOROSIS [None]
  - ANXIETY [None]
  - VITAMIN D DEFICIENCY [None]
  - CARDIAC DISORDER [None]
  - CEREBROVASCULAR ACCIDENT [None]
